FAERS Safety Report 8240647-8 (Version None)
Quarter: 2012Q1

REPORT INFORMATION
  Report Type: 
  Country: None (occurrence: None)
  Receive Date: 20120328
  Receipt Date: 20120322
  Transmission Date: 20120608
  Serious: Yes (Hospitalization)
  Sender: FDA-Public Use
  Company Number: US-PFIZER INC-2012075143

PATIENT
  Sex: Female
  Weight: 86.168 kg

DRUGS (6)
  1. LYRICA [Suspect]
     Indication: FIBROMYALGIA
     Dosage: 50 MG, DAILY
     Dates: start: 20120101
  2. IBUPROFEN [Concomitant]
     Indication: INFLAMMATION
     Dosage: 800 MG, 3X/DAY
  3. IBUPROFEN [Concomitant]
     Indication: PAIN
  4. PROTONIX [Concomitant]
     Dosage: 40 MG, DAILY
  5. MS CONTIN [Concomitant]
     Indication: INFLAMMATION
     Dosage: 60 MG, 2X/DAY
  6. MS CONTIN [Concomitant]
     Indication: PAIN

REACTIONS (1)
  - PROCEDURAL PAIN [None]
